FAERS Safety Report 6232705-4 (Version None)
Quarter: 2009Q2

REPORT INFORMATION
  Report Type: 
  Country: None (occurrence: None)
  Receive Date: 20090617
  Receipt Date: 20090608
  Transmission Date: 20091009
  Serious: Yes (Hospitalization)
  Sender: FDA-Public Use
  Company Number: PHHO2009FR07061

PATIENT
  Sex: Female
  Weight: 48 kg

DRUGS (3)
  1. RAD 666 RAD+TAB+CMAS [Suspect]
     Indication: BREAST CANCER
     Dosage: 10 MG DAILY
     Route: 048
     Dates: start: 20090526
  2. TRASTUZUMAB [Concomitant]
  3. PACLITAXEL [Concomitant]

REACTIONS (1)
  - GENERAL PHYSICAL HEALTH DETERIORATION [None]
